FAERS Safety Report 7860956-1 (Version None)
Quarter: 2011Q4

REPORT INFORMATION
  Report Type: 
  Country: None (occurrence: None)
  Receive Date: 20111027
  Receipt Date: 20111025
  Transmission Date: 20120403
  Serious: Yes (Life-Threatening, Other)
  Sender: FDA-Public Use
  Company Number: CN-BAYER-2011-104252

PATIENT
  Age: 58 Year
  Sex: Female

DRUGS (1)
  1. ULTRAVIST 370 [Suspect]
     Indication: COMPUTERISED TOMOGRAM
     Dosage: 90 ML, ONCE
     Route: 042
     Dates: start: 20111021, end: 20111021

REACTIONS (10)
  - DEPRESSED LEVEL OF CONSCIOUSNESS [None]
  - CARDIAC ARREST [None]
  - NAUSEA [None]
  - PULSE ABSENT [None]
  - DISCOMFORT [None]
  - DYSARTHRIA [None]
  - VOMITING [None]
  - DYSPNOEA [None]
  - UNRESPONSIVE TO STIMULI [None]
  - BLOOD PRESSURE ABNORMAL [None]
